FAERS Safety Report 6978852-0 (Version None)
Quarter: 2010Q3

REPORT INFORMATION
  Report Type: 
  Country: None (occurrence: None)
  Receive Date: 20100908
  Receipt Date: 20100826
  Transmission Date: 20110219
  Serious: Yes (Other)
  Sender: FDA-Public Use
  Company Number: 017934

PATIENT
  Sex: Female
  Weight: 81.6 kg

DRUGS (3)
  1. KEPPRA [Suspect]
     Indication: CONVULSION
     Dosage: SEE IMAGE
     Dates: end: 20100801
  2. KEPPRA [Suspect]
     Indication: CONVULSION
     Dosage: SEE IMAGE
     Dates: start: 20081001
  3. KEPPRA [Suspect]
     Indication: CONVULSION
     Dosage: SEE IMAGE
     Dates: start: 20100801

REACTIONS (3)
  - CONVULSION [None]
  - ECONOMIC PROBLEM [None]
  - UNDERDOSE [None]
